FAERS Safety Report 5620796-0 (Version None)
Quarter: 2008Q1

REPORT INFORMATION
  Report Type: 
  Country: None (occurrence: None)
  Receive Date: 20080208
  Receipt Date: 20080129
  Transmission Date: 20080703
  Serious: Yes (Other)
  Sender: FDA-Public Use
  Company Number: US-PFIZER INC-2007000739

PATIENT
  Sex: Female
  Weight: 79.4 kg

DRUGS (11)
  1. CHANTIX [Suspect]
     Indication: SMOKING CESSATION THERAPY
     Dates: start: 20060901, end: 20061204
  2. KEPPRA [Suspect]
     Indication: MANIA
     Dates: start: 20061101, end: 20061101
  3. KEPPRA [Suspect]
     Indication: BIPOLAR DISORDER
  4. CYMBALTA [Concomitant]
  5. TOPAMAX [Concomitant]
  6. TRILEPTAL [Concomitant]
     Indication: BIPOLAR DISORDER
  7. ABILIFY [Concomitant]
  8. NEXIUM [Concomitant]
  9. LOVASTATIN [Concomitant]
  10. VERAPAMIL [Concomitant]
     Indication: HYPERTENSION
  11. MIACALCIN [Concomitant]

REACTIONS (15)
  - BACK PAIN [None]
  - BALANCE DISORDER [None]
  - BRAIN OEDEMA [None]
  - COORDINATION ABNORMAL [None]
  - DIPLOPIA [None]
  - DIZZINESS [None]
  - DYSARTHRIA [None]
  - INSOMNIA [None]
  - MANIA [None]
  - MOOD SWINGS [None]
  - MUSCLE SPASMS [None]
  - MUSCULAR WEAKNESS [None]
  - PAIN IN EXTREMITY [None]
  - VISION BLURRED [None]
  - VISUAL ACUITY REDUCED [None]
